FAERS Safety Report 18899620 (Version 1)
Quarter: 2021Q1

REPORT INFORMATION
  Report Type: Spontaneous
  Country: US (occurrence: US)
  Receive Date: 20210216
  Receipt Date: 20210216
  Transmission Date: 20210420
  Serious: Yes (Other)
  Sender: FDA-Public Use
  Company Number: US-CELGENEUS-USA-20210203063

PATIENT
  Sex: Male

DRUGS (5)
  1. THALOMID [Suspect]
     Active Substance: THALIDOMIDE
     Dosage: 200 MILLIGRAM
     Route: 048
     Dates: start: 201912
  2. THALOMID [Suspect]
     Active Substance: THALIDOMIDE
     Dosage: 50 MILLIGRAM
     Route: 048
     Dates: start: 202009
  3. THALOMID [Suspect]
     Active Substance: THALIDOMIDE
     Indication: OFF LABEL USE
     Dosage: 100?50 MG
     Route: 048
     Dates: start: 201902
  4. THALOMID [Suspect]
     Active Substance: THALIDOMIDE
     Indication: ANGIOPATHY
     Dosage: 100 MILLIGRAM
     Route: 048
     Dates: start: 201807
  5. THALOMID [Suspect]
     Active Substance: THALIDOMIDE
     Dosage: 50?100 MG
     Route: 048
     Dates: start: 202002

REACTIONS (1)
  - Neuropathy peripheral [Unknown]
